FAERS Safety Report 7004041-X (Version None)
Quarter: 2010Q3

REPORT INFORMATION
  Report Type: 
  Country: None (occurrence: None)
  Receive Date: 20100920
  Receipt Date: 20100115
  Transmission Date: 20110219
  Serious: No
  Sender: FDA-Public Use
  Company Number: US-WYE-H13078410

PATIENT
  Sex: Female

DRUGS (11)
  1. PRISTIQ [Suspect]
     Indication: BIPOLAR I DISORDER
     Route: 048
     Dates: start: 20090801
  2. SYNTHROID [Concomitant]
  3. DIOVAN [Concomitant]
  4. SPIRONOLACTONE [Concomitant]
  5. CHLORDIAZEPOXIDE [Concomitant]
  6. METFORMIN [Concomitant]
  7. NOVOLOG [Concomitant]
  8. LASIX [Concomitant]
  9. IMODIUM [Concomitant]
  10. LAMOTRIGINE [Concomitant]
  11. PREVACID [Concomitant]

REACTIONS (1)
  - MEDICATION RESIDUE [None]
